FAERS Safety Report 23330285 (Version 1)
Quarter: 2023Q4

REPORT INFORMATION
  Report Type: Spontaneous
  Country: US (occurrence: US)
  Receive Date: 20231222
  Receipt Date: 20231222
  Transmission Date: 20240110
  Serious: Yes (Other)
  Sender: FDA-Public Use
  Company Number: US-SA-SAC20231220000550

PATIENT
  Sex: Female

DRUGS (1)
  1. DUPIXENT [Suspect]
     Active Substance: DUPILUMAB
     Indication: Dermatitis atopic
     Dosage: 1 DF, QOW
     Route: 058

REACTIONS (6)
  - Eczema herpeticum [Recovering/Resolving]
  - Blister [Recovering/Resolving]
  - Eye discharge [Not Recovered/Not Resolved]
  - Viral infection [Unknown]
  - Paraesthesia [Recovered/Resolved]
  - Discomfort [Unknown]
